FAERS Safety Report 21958833 (Version 1)
Quarter: 2023Q1

REPORT INFORMATION
  Report Type: Spontaneous
  Country: US (occurrence: US)
  Receive Date: 20230206
  Receipt Date: 20230206
  Transmission Date: 20230418
  Serious: No
  Sender: FDA-Public Use
  Company Number: US-AERIE-2022-002611

PATIENT
  Age: 59 Year
  Sex: Female

DRUGS (4)
  1. RHOPRESSA [Suspect]
     Active Substance: NETARSUDIL MESYLATE
     Indication: Corneal disorder
     Dosage: UNK, QHS
     Route: 047
  2. RHOPRESSA [Suspect]
     Active Substance: NETARSUDIL MESYLATE
     Indication: Developmental glaucoma
  3. TIMOLOL [Concomitant]
     Active Substance: TIMOLOL
     Indication: Developmental glaucoma
     Dosage: UNK
     Route: 047
  4. BRIMONIDINE [Concomitant]
     Active Substance: BRIMONIDINE TARTRATE
     Indication: Developmental glaucoma
     Dosage: UNK
     Route: 047

REACTIONS (2)
  - Corneal oedema [Recovered/Resolved]
  - Off label use [Unknown]
